FAERS Safety Report 16786612 (Version 1)
Quarter: 2019Q3

REPORT INFORMATION
  Report Type: Spontaneous
  Country: US (occurrence: US)
  Receive Date: 20190909
  Receipt Date: 20190909
  Transmission Date: 20191005
  Serious: No
  Sender: FDA-Public Use
  Company Number: US-OSMOTICA_PHARMACEUTICAL_US_LLC-POI0573201900235

PATIENT
  Age: 68 Year
  Sex: Female
  Weight: 72.64 kg

DRUGS (1)
  1. OSMOLEX ER [Suspect]
     Active Substance: AMANTADINE
     Indication: MULTIPLE SCLEROSIS
     Route: 050
     Dates: start: 201902, end: 201905

REACTIONS (3)
  - Off label use [Recovered/Resolved]
  - Complication associated with device [Recovered/Resolved]
  - Incorrect route of product administration [Recovered/Resolved]

NARRATIVE: CASE EVENT DATE: 201902
